FAERS Safety Report 10562703 (Version 1)
Quarter: 2014Q4

REPORT INFORMATION
  Report Type: Spontaneous
  Country: US (occurrence: None)
  Receive Date: 20141103
  Receipt Date: 20141103
  Transmission Date: 20150529
  Serious: No
  Sender: FDA-Public Use
  Company Number: None

PATIENT
  Age: 83 Year
  Sex: Male

DRUGS (1)
  1. FLUTAMIDE. [Suspect]
     Active Substance: FLUTAMIDE
     Indication: LEUKAEMIA
     Route: 048
     Dates: start: 20050414, end: 20070913

REACTIONS (2)
  - Diarrhoea [None]
  - Fatigue [None]

NARRATIVE: CASE EVENT DATE: 20070913
